FAERS Safety Report 7398177-1 (Version None)
Quarter: 2011Q2

REPORT INFORMATION
  Report Type: 
  Country: None (occurrence: None)
  Receive Date: 20110406
  Receipt Date: 20110325
  Transmission Date: 20111010
  Serious: Yes (Hospitalization)
  Sender: FDA-Public Use
  Company Number: PHHY2010US02682

PATIENT
  Sex: Male
  Weight: 37.5 kg

DRUGS (5)
  1. EXJADE [Suspect]
     Indication: IRON OVERLOAD
     Dosage: 750 MG, QD
     Route: 048
     Dates: start: 20091201
  2. FOLIC ACID [Concomitant]
     Indication: SICKLE CELL ANAEMIA
     Dosage: 1 MG DAILY
     Route: 048
  3. EXJADE [Suspect]
     Dosage: 750 MG, TID
  4. HYDROXYUREA [Concomitant]
     Indication: SICKLE CELL ANAEMIA
     Dosage: 1000 MG DAILY
     Route: 048
  5. EXJADE [Suspect]
     Dosage: 750 MG, UNK

REACTIONS (6)
  - EYE IRRITATION [None]
  - VISUAL IMPAIRMENT [None]
  - ACCIDENTAL OVERDOSE [None]
  - CEREBROVASCULAR ACCIDENT [None]
  - EYE DISORDER [None]
  - BLINDNESS [None]
